FAERS Safety Report 9384908 (Version 2)
Quarter: 2013Q3

REPORT INFORMATION
  Report Type: Spontaneous
  Country: US (occurrence: US)
  Receive Date: 20130705
  Receipt Date: 20130815
  Transmission Date: 20140515
  Serious: No
  Sender: FDA-Public Use
  Company Number: US-PFIZER INC-2013198451

PATIENT
  Age: 46 Year
  Sex: Female
  Weight: 77.1 kg

DRUGS (2)
  1. PRISTIQ [Suspect]
     Indication: DEPRESSION
     Dosage: 50 MG, 1X/DAY
     Route: 048
  2. LITHIUM [Concomitant]
     Dosage: UNK

REACTIONS (4)
  - Drug ineffective [Unknown]
  - Insomnia [Unknown]
  - Agitation [Unknown]
  - Malaise [Unknown]
